FAERS Safety Report 10596672 (Version 1)
Quarter: 2014Q4

REPORT INFORMATION
  Report Type: Report from Study
  Country: ES (occurrence: ES)
  Receive Date: 20141120
  Receipt Date: 20141120
  Transmission Date: 20150529
  Serious: Yes (Hospitalization)
  Sender: FDA-Public Use
  Company Number: ES-DSJP-DSE-2014-128808

PATIENT

DRUGS (2)
  1. OLMETEC PLUS 40 MG/ 12.5 MG [Suspect]
     Active Substance: HYDROCHLOROTHIAZIDE\OLMESARTAN MEDOXOMIL
     Indication: HYPERTENSION
     Dosage: 40/12.5 MG, QD
     Route: 048
     Dates: start: 2013, end: 20130712
  2. FUROSEMIDA                         /00032601/ [Interacting]
     Active Substance: FUROSEMIDE
     Indication: HYPERTENSION
     Dosage: 60MG, QD(1 - 1/2 - 0)
     Route: 048
     Dates: start: 20130227, end: 20130712

REACTIONS (8)
  - Discomfort [None]
  - Nausea [None]
  - Hyponatraemia [Recovered/Resolved]
  - Drug interaction [None]
  - Nephropathy [None]
  - Disorientation [Recovered/Resolved]
  - Liver disorder [None]
  - Malaise [None]

NARRATIVE: CASE EVENT DATE: 20130712
